FAERS Safety Report 5376396-3 (Version None)
Quarter: 2007Q3

REPORT INFORMATION
  Report Type: 
  Country: None (occurrence: None)
  Receive Date: 20070702
  Receipt Date: 20070622
  Transmission Date: 20080115
  Serious: Yes (Hospitalization)
  Sender: FDA-Public Use
  Company Number: DE-PFIZER INC-2007049733

PATIENT
  Sex: Female
  Weight: 73 kg

DRUGS (1)
  1. CAMPTOSAR [Suspect]
     Indication: RECTAL CANCER
     Dosage: DAILY DOSE:150MG-FREQ:FREQUENCY: DAILY
     Route: 042

REACTIONS (1)
  - IDIOPATHIC THROMBOCYTOPENIC PURPURA [None]
